FAERS Safety Report 5991612-2 (Version None)
Quarter: 2008Q4

REPORT INFORMATION
  Report Type: 
  Country: None (occurrence: None)
  Receive Date: 20081211
  Receipt Date: 20080501
  Transmission Date: 20090506
  Serious: No
  Sender: FDA-Public Use
  Company Number: US-AMGEN-KDL277375

PATIENT
  Sex: Male

DRUGS (1)
  1. ENBREL [Suspect]
     Indication: PSORIASIS
     Route: 058
     Dates: start: 20080317

REACTIONS (5)
  - CHILLS [None]
  - DECREASED APPETITE [None]
  - HEADACHE [None]
  - PYREXIA [None]
  - SKIN LACERATION [None]
